FAERS Safety Report 6168159-6 (Version None)
Quarter: 2009Q2

REPORT INFORMATION
  Report Type: 
  Country: None (occurrence: None)
  Receive Date: 20090423
  Receipt Date: 20090423
  Transmission Date: 20091009
  Serious: Yes (Life-Threatening, Hospitalization)
  Sender: FDA-Public Use
  Company Number: None

PATIENT
  Age: 46 Year
  Sex: Female
  Weight: 90.7194 kg

DRUGS (1)
  1. CARBAMAZEPINE [Suspect]
     Indication: EPILEPSY
     Dosage: 200 MG 4 TIMES DAILY PO
     Route: 048
     Dates: start: 19900101, end: 20090421

REACTIONS (4)
  - ANXIETY [None]
  - BLOOD SODIUM DECREASED [None]
  - DERMATITIS [None]
  - VERTIGO [None]
